FAERS Safety Report 18071981 (Version 3)
Quarter: 2020Q4

REPORT INFORMATION
  Report Type: Spontaneous
  Country: US (occurrence: US)
  Receive Date: 20200727
  Receipt Date: 20201203
  Transmission Date: 20210113
  Serious: Yes (Other)
  Sender: FDA-Public Use
  Company Number: US-PFIZER INC-2020282685

PATIENT
  Age: 46 Year
  Sex: Female

DRUGS (3)
  1. XELJANZ [Suspect]
     Active Substance: TOFACITINIB CITRATE
     Dosage: 5 MG, TWICE A DAY
     Route: 048
     Dates: start: 20191001
  2. XELJANZ [Suspect]
     Active Substance: TOFACITINIB CITRATE
     Indication: COLITIS ULCERATIVE
     Dosage: 5 MG, TWICE A DAY
     Route: 048
     Dates: start: 201910
  3. XELJANZ [Suspect]
     Active Substance: TOFACITINIB CITRATE
     Dosage: 5 MG, DAILY  (TOLD TO TAKE ONE TABLET DAILY; TOOK ONCE DAILY FOR TWO MONTHS)

REACTIONS (14)
  - Blood cholesterol increased [Recovered/Resolved]
  - Vomiting [Recovered/Resolved]
  - Nasopharyngitis [Unknown]
  - Diverticulitis [Recovered/Resolved]
  - Gastrointestinal disorder [Recovered/Resolved]
  - Pain [Recovered/Resolved]
  - Cholelithiasis [Recovered/Resolved]
  - White blood cell count increased [Recovered/Resolved]
  - Sinusitis [Unknown]
  - Headache [Unknown]
  - Condition aggravated [Unknown]
  - Nausea [Recovered/Resolved]
  - Nasal septum deviation [Unknown]
  - Off label use [Unknown]

NARRATIVE: CASE EVENT DATE: 20200814
